FAERS Safety Report 8999337 (Version 3)
Quarter: 2014Q3

REPORT INFORMATION
  Report Type: Spontaneous
  Country: US (occurrence: US)
  Receive Date: 20130103
  Receipt Date: 20140919
  Transmission Date: 20150326
  Serious: No
  Sender: FDA-Public Use
  Company Number: US-009507513-1301USA000486

PATIENT
  Sex: Male

DRUGS (3)
  1. DICLOFLEX [Concomitant]
  2. SINGULAIR [Concomitant]
     Active Substance: MONTELUKAST SODIUM
  3. PROVENTIL [Suspect]
     Active Substance: ALBUTEROL
     Indication: DYSPNOEA
     Dosage: STRENGTH:1 STANDARD DOSE OF 6.7 (UNITS NOT REPORTED), DOSE: 2 PUFFS EVERY 4 TO 6 HOURS
     Route: 055
     Dates: start: 2012

REACTIONS (4)
  - Dyspnoea exertional [Not Recovered/Not Resolved]
  - Drug dose omission [Unknown]
  - Product quality issue [Unknown]
  - No adverse event [Unknown]
